FAERS Safety Report 9907413 (Version 2)
Quarter: 2014Q1

REPORT INFORMATION
  Report Type: Spontaneous
  Country: US (occurrence: US)
  Receive Date: 20140218
  Receipt Date: 20140225
  Transmission Date: 20141002
  Serious: Yes (Death)
  Sender: FDA-Public Use
  Company Number: US-AMGEN-USASP2014011397

PATIENT
  Age: 29 Year
  Sex: Male
  Weight: 54.42 kg

DRUGS (5)
  1. NEULASTA [Suspect]
     Indication: PRODUCT USED FOR UNKNOWN INDICATION
     Dosage: UNK
     Route: 065
     Dates: start: 20130627, end: 20130627
  2. NEUPOGEN [Suspect]
     Indication: PRODUCT USED FOR UNKNOWN INDICATION
     Dosage: UNK
     Route: 065
  3. BLEOMYCIN [Concomitant]
     Indication: TESTIS CANCER
     Dosage: UNK
  4. ETOPOSIDE [Concomitant]
     Indication: TESTIS CANCER
     Dosage: UNK
  5. CISPLATIN [Concomitant]
     Indication: TESTIS CANCER
     Dosage: UNK

REACTIONS (1)
  - Testis cancer [Fatal]
